FAERS Safety Report 11308627 (Version 2)
Quarter: 2015Q3

REPORT INFORMATION
  Report Type: Report from Study
  Country: NL (occurrence: NL)
  Receive Date: 20150724
  Receipt Date: 20150824
  Transmission Date: 20151125
  Serious: Yes (Death)
  Sender: FDA-Public Use
  Company Number: PHHY2013NL055260

PATIENT
  Age: 75 Year
  Sex: Female

DRUGS (1)
  1. ZOMETA [Suspect]
     Active Substance: ZOLEDRONIC ACID
     Indication: BREAST CANCER METASTATIC
     Dosage: 4 MG/100 ML, ONCE PER 4 WEEKS
     Route: 042

REACTIONS (3)
  - Myalgia [Recovered/Resolved]
  - Malaise [Recovered/Resolved]
  - Breast cancer metastatic [Fatal]

NARRATIVE: CASE EVENT DATE: 20130503
